FAERS Safety Report 22192237 (Version 1)
Quarter: 2023Q2

REPORT INFORMATION
  Report Type: Report from Study
  Country: US (occurrence: US)
  Receive Date: 20230410
  Receipt Date: 20230410
  Transmission Date: 20230721
  Serious: Yes (Other)
  Sender: FDA-Public Use
  Company Number: US-ABBVIE-4720052

PATIENT
  Sex: Female

DRUGS (1)
  1. IMBRUVICA [Suspect]
     Active Substance: IBRUTINIB
     Indication: Product used for unknown indication
     Route: 048
     Dates: start: 20130417

REACTIONS (4)
  - Cataract [Recovered/Resolved]
  - Contusion [Unknown]
  - Dehydration [Unknown]
  - Mantle cell lymphoma stage IV [Recovering/Resolving]
